FAERS Safety Report 8383748-6 (Version None)
Quarter: 2012Q1

REPORT INFORMATION
  Report Type: 
  Country: None (occurrence: None)
  Receive Date: 20120323
  Receipt Date: 20110301
  Transmission Date: 20120608
  Serious: Yes (Other)
  Sender: FDA-Public Use
  Company Number: 163-21880-11030565

PATIENT
  Age: 57 Year
  Sex: Female

DRUGS (2)
  1. REVLIMID [Suspect]
     Indication: AMYLOIDOSIS
     Dosage: 15 MG, 1 IN 1 D, PO 10 MG, DAILY ON DAYS 1-21 IN A 28 DAYS CYCLE, PO
     Route: 048
     Dates: start: 20081101
  2. REVLIMID [Suspect]
     Indication: AMYLOIDOSIS
     Dosage: 15 MG, 1 IN 1 D, PO 10 MG, DAILY ON DAYS 1-21 IN A 28 DAYS CYCLE, PO
     Route: 048
     Dates: start: 20090428

REACTIONS (1)
  - PNEUMONIA [None]
